FAERS Safety Report 7913321-2 (Version None)
Quarter: 2011Q4

REPORT INFORMATION
  Report Type: 
  Country: None (occurrence: None)
  Receive Date: 20111114
  Receipt Date: 20110808
  Transmission Date: 20120403
  Serious: Yes (Hospitalization)
  Sender: FDA-Public Use
  Company Number: US-AMGEN-USASP2011042448

PATIENT
  Age: 67 Year
  Sex: Female

DRUGS (6)
  1. RIBAVIRIN [Concomitant]
     Indication: HEPATITIS C
     Dosage: 600 MG, BID
     Route: 048
     Dates: start: 20110627
  2. EPOETIN ALFA [Suspect]
     Indication: PRODUCT USED FOR UNKNOWN INDICATION
     Dosage: 10000 IU, UNK
     Dates: start: 20110802
  3. PEGINTERFERON [Concomitant]
     Indication: HEPATITIS C
     Dosage: 180 MUG, QWK
     Route: 058
     Dates: start: 20110629
  4. SYNTHROID [Concomitant]
  5. SPIRONOLACTONE [Concomitant]
  6. TELAPREVIR [Suspect]
     Indication: HEPATITIS C
     Dosage: 750 MG, Q8H
     Route: 048
     Dates: start: 20110627

REACTIONS (8)
  - CONFUSIONAL STATE [None]
  - INCREASED TENDENCY TO BRUISE [None]
  - LETHARGY [None]
  - POSTMENOPAUSAL HAEMORRHAGE [None]
  - ASTHENIA [None]
  - WEIGHT DECREASED [None]
  - DISORIENTATION [None]
  - ANAEMIA [None]
